FAERS Safety Report 18418250 (Version 3)
Quarter: 2020Q4

REPORT INFORMATION
  Report Type: Spontaneous
  Country: US (occurrence: US)
  Receive Date: 20201023
  Receipt Date: 20201117
  Transmission Date: 20210114
  Serious: Yes (Other)
  Sender: FDA-Public Use
  Company Number: US-GLAXOSMITHKLINE-US2020AMR205518

PATIENT
  Sex: Female

DRUGS (1)
  1. BENLYSTA [Suspect]
     Active Substance: BELIMUMAB
     Indication: SYSTEMIC LUPUS ERYTHEMATOSUS
     Dosage: 200 MG
     Route: 058

REACTIONS (6)
  - Illness [Unknown]
  - Systemic lupus erythematosus [Unknown]
  - Social problem [Unknown]
  - Product dose omission issue [Unknown]
  - Ill-defined disorder [Unknown]
  - Arthritis [Unknown]
